FAERS Safety Report 8541443 (Version 4)
Quarter: 2012Q4

REPORT INFORMATION
  Report Type: 
  Country: US (occurrence: US)
  Receive Date: 20120502
  Receipt Date: 20121130
  Transmission Date: 20130627
  Serious: Yes (Other)
  Sender: FDA-Public Use
  Company Number: US-ENDO PHARMACEUTICALS INC.-OPCR20120322

PATIENT
  Sex: Male

DRUGS (2)
  1. OPANA ER [Suspect]
     Indication: PAIN
     Dosage: UNKNOWN
     Route: 048
     Dates: start: 2012, end: 2012
  2. OPANA ER [Concomitant]
     Indication: PAIN
     Dosage: UNKNOWN
     Route: 048
     Dates: start: 2007, end: 2012

REACTIONS (8)
  - Malaise [Unknown]
  - Condition aggravated [Unknown]
  - Cardiac disorder [Unknown]
  - Abdominal pain upper [Unknown]
  - Nausea [Unknown]
  - Headache [Unknown]
  - Drug effect decreased [Recovered/Resolved]
  - Drug ineffective [Recovered/Resolved]
